FAERS Safety Report 25995627 (Version 1)
Quarter: 2025Q4

REPORT INFORMATION
  Report Type: Spontaneous
  Country: CN (occurrence: CN)
  Receive Date: 20251104
  Receipt Date: 20251104
  Transmission Date: 20260118
  Serious: Yes (Hospitalization)
  Sender: Haleon PLC
  Company Number: CN-HALEON-2271480

PATIENT
  Age: 67 Year
  Sex: Male
  Weight: 63 kg

DRUGS (1)
  1. IBUPROFEN [Suspect]
     Active Substance: IBUPROFEN
     Indication: Analgesic therapy
     Dosage: FORMULATION: SUSTAINED-RELEASE CAPSULES
     Route: 048
     Dates: start: 20251012, end: 20251013

REACTIONS (6)
  - Dermatitis contact [Recovering/Resolving]
  - Blister [Recovering/Resolving]
  - Erythema [Recovering/Resolving]
  - Skin infection [Recovering/Resolving]
  - Skin weeping [Recovering/Resolving]
  - Skin swelling [Recovering/Resolving]

NARRATIVE: CASE EVENT DATE: 20251012
